FAERS Safety Report 13507136 (Version 1)
Quarter: 2017Q2

REPORT INFORMATION
  Report Type: Spontaneous
  Country: HU (occurrence: HU)
  Receive Date: 20170503
  Receipt Date: 20170503
  Transmission Date: 20170830
  Serious: Yes (Death, Hospitalization)
  Sender: FDA-Public Use
  Company Number: HU-ACTELION-A-CH2015-122252

PATIENT
  Age: 44 Year
  Sex: Male
  Weight: 80 kg

DRUGS (5)
  1. REVATIO [Concomitant]
     Active Substance: SILDENAFIL CITRATE
     Indication: PULMONARY ARTERIAL HYPERTENSION
     Dosage: 20 MG, TID
     Route: 048
     Dates: start: 201209, end: 20170425
  2. VEROSPIRON [Concomitant]
     Active Substance: SPIRONOLACTONE
     Indication: RIGHT VENTRICULAR FAILURE
     Dosage: 50 MG, OD
     Route: 048
     Dates: start: 201005, end: 20170425
  3. TRACLEER [Suspect]
     Active Substance: BOSENTAN
     Indication: PULMONARY ARTERIAL HYPERTENSION
     Dosage: 125 MG, BID
     Route: 048
     Dates: start: 201005, end: 20170425
  4. INSPRA [Concomitant]
     Active Substance: EPLERENONE
     Indication: CARDIAC FAILURE
     Dosage: 50 MG, BID
     Route: 048
  5. FUROSEMIDE. [Concomitant]
     Active Substance: FUROSEMIDE
     Indication: RIGHT VENTRICULAR FAILURE
     Dosage: 250 MG, OD
     Route: 048
     Dates: start: 201511, end: 20170425

REACTIONS (7)
  - Right ventricular failure [Fatal]
  - Blood creatinine increased [Fatal]
  - Oedema peripheral [Fatal]
  - Blood urea increased [Fatal]
  - Gastrointestinal infection [Unknown]
  - Concomitant disease progression [Fatal]
  - Vomiting [Unknown]
